FAERS Safety Report 7251836-3 (Version None)
Quarter: 2011Q1

REPORT INFORMATION
  Report Type: 
  Country: None (occurrence: None)
  Receive Date: 20110128
  Receipt Date: 20100127
  Transmission Date: 20110831
  Serious: No
  Sender: FDA-Public Use
  Company Number: US-ABBOTT-09P-163-0608739-00

PATIENT
  Sex: Male
  Weight: 53.572 kg

DRUGS (5)
  1. CARAFATE [Concomitant]
     Indication: GASTROOESOPHAGEAL REFLUX DISEASE
     Route: 048
  2. HUMIRA [Suspect]
     Indication: CROHN'S DISEASE
     Dates: start: 20091030, end: 20091030
  3. PANTOPRAZOLE [Concomitant]
     Route: 048
     Dates: start: 20100101
  4. HUMIRA [Suspect]
     Route: 058
  5. PANTOPRAZOLE [Concomitant]
     Indication: GASTROOESOPHAGEAL REFLUX DISEASE
     Route: 048
     Dates: end: 20100101

REACTIONS (2)
  - DRUG INEFFECTIVE [None]
  - ABDOMINAL PAIN [None]
